FAERS Safety Report 4622194-5 (Version None)
Quarter: 2005Q1

REPORT INFORMATION
  Report Type: 
  Country: None (occurrence: None)
  Receive Date: 20050324
  Receipt Date: 20050324
  Transmission Date: 20050727
  Serious: No
  Sender: FDA-Public Use
  Company Number: None

PATIENT
  Sex: Female

DRUGS (7)
  1. ALLOPURINOL [Suspect]
     Dosage: 300 MG PO QD ON DAYS 1-14 (COURSE I ONLY)
     Route: 048
     Dates: start: 20040702
  2. CYCLOPHOSPHAMIDE [Suspect]
     Dosage: 1200 MG/M2 IV OVER 15-30 MIN ON DAY 1
     Route: 042
  3. DAUNORUBICIN HCL [Suspect]
     Dosage: 80 MG/M2/DAY X 3 DAYS IV ON DAYS 1,2,3,
     Route: 042
  4. VINCRISTINE [Suspect]
     Dosage: 2 MG IVP ON DAYS 1,8,15,22
  5. DEXAMETHASONE [Suspect]
     Dosage: 5 MG/M2 PO BID ON DAYS 1-7
  6. ELSPAR [Suspect]
     Dosage: 6000 U/M2 SC/IM ON DAYS 5,8,11,15,18,22
     Route: 058
  7. G-CSF [Suspect]
     Dosage: 5 MG/KG/DAY STARTING DAYS 4X7 DAYS AND COUNTING UNTIL ANC IS }5000 MCL PRN
     Route: 058

REACTIONS (6)
  - ASPERGILLOSIS [None]
  - FUNGAEMIA [None]
  - OEDEMA [None]
  - PNEUMONIA [None]
  - RENAL FAILURE ACUTE [None]
  - RESPIRATORY DISORDER [None]
